FAERS Safety Report 6267806-8 (Version None)
Quarter: 2009Q3

REPORT INFORMATION
  Report Type: 
  Country: None (occurrence: None)
  Receive Date: 20090714
  Receipt Date: 20090706
  Transmission Date: 20100115
  Serious: Yes (Death, Disabling, Other)
  Sender: FDA-Public Use
  Company Number: US-PURDUE-USA_2007_0028973

PATIENT
  Sex: Male
  Weight: 83.9 kg

DRUGS (10)
  1. OXYCONTIN [Suspect]
     Indication: BACK PAIN
     Dosage: 20 MG, SEE TEXT
     Route: 048
     Dates: start: 20030401
  2. DIAZEPAM [Suspect]
     Indication: DRUG USE FOR UNKNOWN INDICATION
  3. MARIJUANA [Suspect]
     Indication: DRUG ABUSE
  4. OXYCODONE HCL [Concomitant]
     Indication: BREAKTHROUGH PAIN
     Dosage: 5 MG, UNK
  5. XANAX [Concomitant]
     Indication: ANXIETY
     Dosage: 1 MG, UNK
  6. NEURONTIN [Concomitant]
     Dosage: 300 UNK, UNK
  7. LEXAPRO [Concomitant]
     Dosage: 10 MG, UNK
  8. WELLBUTRIN [Concomitant]
     Indication: PAIN
     Dosage: 150 MG, DAILY
     Dates: start: 20030801
  9. WELLBUTRIN [Concomitant]
     Indication: DEPRESSION
  10. BEXTRA                             /01400702/ [Concomitant]
     Dosage: UNK

REACTIONS (9)
  - ANXIETY [None]
  - DEFORMITY [None]
  - DISABILITY [None]
  - DRUG DEPENDENCE [None]
  - DRUG INEFFECTIVE [None]
  - FATIGUE [None]
  - MULTIPLE DRUG OVERDOSE ACCIDENTAL [None]
  - PAIN [None]
  - SUBSTANCE ABUSE [None]
